FAERS Safety Report 24898202 (Version 1)
Quarter: 2025Q1

REPORT INFORMATION
  Report Type: Spontaneous
  Country: US (occurrence: US)
  Receive Date: 20250129
  Receipt Date: 20250129
  Transmission Date: 20250409
  Serious: No
  Sender: TAKEDA
  Company Number: US-TAKEDA-2025TUS007640

PATIENT
  Sex: Female
  Weight: 73 kg

DRUGS (12)
  1. TRINTELLIX [Suspect]
     Active Substance: VORTIOXETINE HYDROBROMIDE
     Indication: Depression
     Dosage: 20 MILLIGRAM, QD
  2. ONDANSETRON [Concomitant]
     Active Substance: ONDANSETRON
  3. ROPINIROLE [Concomitant]
     Active Substance: ROPINIROLE
  4. Presidio [Concomitant]
  5. XGEVA [Concomitant]
     Active Substance: DENOSUMAB
  6. GABAPENTIN [Concomitant]
     Active Substance: GABAPENTIN
  7. PANTOPRAZOLE [Concomitant]
     Active Substance: PANTOPRAZOLE
  8. LETROZOLE [Concomitant]
     Active Substance: LETROZOLE
  9. LORAZEPAM [Concomitant]
     Active Substance: LORAZEPAM
  10. HYDROCODONE [Concomitant]
     Active Substance: HYDROCODONE
     Indication: Pain
  11. LUPRON [Concomitant]
     Active Substance: LEUPROLIDE ACETATE
     Dosage: UNK UNK, MONTHLY
  12. VITAMINS [Concomitant]
     Active Substance: VITAMINS

REACTIONS (1)
  - Body height decreased [Unknown]
